FAERS Safety Report 12227075 (Version 1)
Quarter: 2016Q1

REPORT INFORMATION
  Report Type: Spontaneous
  Country: US (occurrence: US)
  Receive Date: 20160331
  Receipt Date: 20160331
  Transmission Date: 20160526
  Serious: No
  Sender: FDA-Public Use
  Company Number: US-PFIZER INC-2016162600

PATIENT
  Age: 61 Year
  Sex: Male
  Weight: 214.7 kg

DRUGS (1)
  1. SUTENT [Suspect]
     Active Substance: SUNITINIB MALATE
     Indication: GASTROINTESTINAL STROMAL TUMOUR
     Dosage: 50 MG, CYCLIC, DAYS 1-28 Q 42 DAYS
     Route: 048
     Dates: start: 20160309

REACTIONS (1)
  - Diarrhoea [Unknown]
